FAERS Safety Report 7999047-8 (Version None)
Quarter: 2011Q4

REPORT INFORMATION
  Report Type: 
  Country: None (occurrence: None)
  Receive Date: 20111221
  Receipt Date: 20111216
  Transmission Date: 20120403
  Serious: Yes (Hospitalization, Other)
  Sender: FDA-Public Use
  Company Number: JP-ROCHE-1016698

PATIENT
  Age: 69 Year
  Sex: Male
  Weight: 70 kg

DRUGS (16)
  1. XELODA [Suspect]
     Dosage: IT IS ONE ADMINISTERING WEEKLY HOLIDAY MEDICINE FOR TWO WEEKS.
     Route: 048
     Dates: start: 20110916, end: 20110918
  2. FERROUS CITRATE [Concomitant]
     Indication: ANAEMIA
     Route: 048
     Dates: start: 20090306, end: 20110918
  3. LOXONIN [Concomitant]
     Indication: MUSCULOSKELETAL PAIN
     Route: 048
     Dates: start: 20101122, end: 20110228
  4. XELODA [Suspect]
     Indication: COLON CANCER METASTATIC
     Dosage: IT IS ONE ADMINISTERING WEEKLY HOLIDAY MEDICINE FOR TWO WEEKS.
     Route: 048
     Dates: start: 20090313, end: 20091210
  5. PYDOXAL [Concomitant]
     Indication: PROPHYLAXIS
     Route: 048
     Dates: start: 20090424, end: 20110918
  6. XELODA [Suspect]
     Dosage: IT IS ONE ADMINISTERING WEEKLY HOLIDAY MEDICINE FOR TWO WEEKS.
     Route: 048
     Dates: start: 20110218, end: 20110715
  7. TS-1 [Suspect]
     Indication: COLON CANCER METASTATIC
     Dosage: DOSAGE IS UNCERTAIN.
     Route: 048
     Dates: start: 20111117
  8. AMLODIPINE [Concomitant]
     Indication: LIPIDS ABNORMAL
     Route: 048
  9. XELODA [Suspect]
     Dosage: IT IS ONE ADMINISTERING WEEKLY HOLIDAY MEDICINE FOR TWO WEEKS.
     Route: 048
     Dates: start: 20110715, end: 20110826
  10. OXALIPLATIN [Suspect]
     Route: 041
     Dates: start: 20110715, end: 20110826
  11. IRINOTECAN HCL [Suspect]
     Indication: COLON CANCER METASTATIC
     Dosage: DOSAGE IS UNCERTAIN.
     Route: 041
     Dates: start: 20111117
  12. CANDESARTAN CILEXETIL [Concomitant]
     Indication: HYPERTENSION
     Route: 048
  13. OXALIPLATIN [Suspect]
     Indication: COLON CANCER METASTATIC
     Route: 041
     Dates: start: 20110218, end: 20110715
  14. ALOXI [Concomitant]
     Indication: PROPHYLAXIS
     Route: 042
     Dates: start: 20110218, end: 20110805
  15. AVASTIN [Suspect]
     Indication: COLON CANCER METASTATIC
     Route: 041
     Dates: start: 20110617, end: 20110918
  16. DECADRON [Concomitant]
     Indication: PROPHYLAXIS
     Dosage: AMOUNT 2
     Route: 042
     Dates: start: 20110218, end: 20110805

REACTIONS (3)
  - HYPERAMMONAEMIA [None]
  - CEREBRAL ISCHAEMIA [None]
  - BONE MARROW FAILURE [None]
